FAERS Safety Report 4413301-8 (Version None)
Quarter: 2004Q3

REPORT INFORMATION
  Report Type: 
  Country: None (occurrence: None)
  Receive Date: 20040728
  Receipt Date: 20040716
  Transmission Date: 20050211
  Serious: Yes (Disabling, Other)
  Sender: FDA-Public Use
  Company Number: 2004-03175

PATIENT
  Sex: Female

DRUGS (3)
  1. FERRLECIT [Suspect]
     Indication: IRON DEFICIENCY ANAEMIA
     Dosage: INTRAVENOUS
     Route: 042
  2. CARVEDILOL [Concomitant]
  3. SPIRONOLACTONE [Concomitant]

REACTIONS (6)
  - ASTHENIA [None]
  - ERYTHEMA [None]
  - HYPOREFLEXIA [None]
  - MULTIPLE SCLEROSIS [None]
  - PAIN [None]
  - PARAESTHESIA [None]
